FAERS Safety Report 5410655-0 (Version None)
Quarter: 2007Q3

REPORT INFORMATION
  Report Type: 
  Country: None (occurrence: None)
  Receive Date: 20070810
  Receipt Date: 20070510
  Transmission Date: 20080115
  Serious: No
  Sender: FDA-Public Use
  Company Number: A0651057A

PATIENT
  Sex: Female

DRUGS (1)
  1. PAXIL [Suspect]
     Indication: DRUG USE FOR UNKNOWN INDICATION
     Route: 048

REACTIONS (3)
  - DRUG WITHDRAWAL SYNDROME [None]
  - INFLUENZA LIKE ILLNESS [None]
  - MALAISE [None]
